FAERS Safety Report 19000850 (Version 1)
Quarter: 2021Q1

REPORT INFORMATION
  Report Type: Spontaneous
  Country: US (occurrence: US)
  Receive Date: 20210311
  Receipt Date: 20210311
  Transmission Date: 20210420
  Serious: Yes (Other)
  Sender: FDA-Public Use
  Company Number: US-ASTRAZENECA-2021A116633

PATIENT
  Age: 14854 Day
  Sex: Female
  Weight: 77.1 kg

DRUGS (10)
  1. ADVAIR HFA [Concomitant]
     Active Substance: FLUTICASONE PROPIONATE\SALMETEROL XINAFOATE
     Indication: ASTHMA
     Route: 055
  2. FASENRA [Suspect]
     Active Substance: BENRALIZUMAB
     Indication: IMMUNOGLOBULINS
     Route: 058
     Dates: start: 20210107
  3. SINGULAIR [Concomitant]
     Active Substance: MONTELUKAST SODIUM
     Indication: HYPERSENSITIVITY
     Route: 048
  4. PREDNISONE. [Concomitant]
     Active Substance: PREDNISONE
     Indication: ASTHMA
     Dates: start: 202102
  5. ADDERALL [Concomitant]
     Active Substance: AMPHETAMINE ASPARTATE\AMPHETAMINE SULFATE\DEXTROAMPHETAMINE SACCHARATE\DEXTROAMPHETAMINE SULFATE
     Indication: ATTENTION DEFICIT HYPERACTIVITY DISORDER
     Route: 048
  6. SINGULAIR [Concomitant]
     Active Substance: MONTELUKAST SODIUM
     Indication: ASTHMA
     Route: 048
  7. ALBUTEROL NEBULIZER [Concomitant]
     Active Substance: ALBUTEROL
     Indication: ASTHMA
     Dosage: 2.5MG AS REQUIRED
     Route: 055
  8. ALBUTEROL RESCUE INHALER [Concomitant]
     Indication: ASTHMA
     Dosage: AS REQUIRED
     Route: 055
  9. FASENRA [Suspect]
     Active Substance: BENRALIZUMAB
     Indication: ASTHMA
     Route: 058
     Dates: start: 20210107
  10. SPIRIVA RESPIMAT [Concomitant]
     Active Substance: TIOTROPIUM BROMIDE
     Indication: ASTHMA
     Dosage: 2 PUFFS 2.5MG OR MCG DAILY
     Route: 055

REACTIONS (8)
  - Pyrexia [Recovered/Resolved]
  - Asthma [Recovering/Resolving]
  - Diarrhoea [Recovered/Resolved]
  - Chills [Recovered/Resolved]
  - Cough [Not Recovered/Not Resolved]
  - Pain [Recovered/Resolved]
  - Ill-defined disorder [Unknown]
  - Drug ineffective [Unknown]

NARRATIVE: CASE EVENT DATE: 202101
